FAERS Safety Report 19981462 (Version 1)
Quarter: 2021Q4

REPORT INFORMATION
  Report Type: Spontaneous
  Country: US (occurrence: US)
  Receive Date: 20211021
  Receipt Date: 20211021
  Transmission Date: 20220303
  Serious: No
  Sender: FDA-Public Use
  Company Number: US-MILLICENT HOLDINGS LTD.-MILL20210909

PATIENT
  Age: 70 Year

DRUGS (1)
  1. INTRAROSA [Suspect]
     Active Substance: PRASTERONE
     Indication: Vaginal abscess
     Dosage: ONE
     Route: 067

REACTIONS (2)
  - Off label use [Unknown]
  - Product dose omission issue [None]

NARRATIVE: CASE EVENT DATE: 20190101
